FAERS Safety Report 11924816 (Version 3)
Quarter: 2016Q1

REPORT INFORMATION
  Report Type: Spontaneous
  Country: RU (occurrence: RU)
  Receive Date: 20160118
  Receipt Date: 20160129
  Transmission Date: 20160526
  Serious: Yes (Death, Hospitalization, Other)
  Sender: FDA-Public Use
  Company Number: RU-BAYER-2016-003196

PATIENT
  Age: 21 Year
  Sex: Male

DRUGS (3)
  1. IMMUNGLOBULIN [IMMUNOGLOBULIN HUMAN NORMAL] [Concomitant]
     Active Substance: HUMAN IMMUNOGLOBULIN G
     Indication: IMMUNE SYSTEM DISORDER
     Dosage: UNK
  2. ERTAPENEM [Concomitant]
     Active Substance: ERTAPENEM
     Dosage: 1 G, QD
     Route: 042
  3. MOXIFLOXACIN IV [Suspect]
     Active Substance: MOXIFLOXACIN
     Dosage: 400 MG, QD
     Route: 042

REACTIONS (19)
  - Pneumothorax [None]
  - Respiratory failure [None]
  - Acute kidney injury [None]
  - Coagulopathy [None]
  - Bradyarrhythmia [None]
  - Cardiac arrest [Fatal]
  - Septic shock [None]
  - Subcutaneous emphysema [None]
  - Multiple organ dysfunction syndrome [None]
  - Pneumonia [None]
  - Unevaluable event [None]
  - Haemothorax [None]
  - Haemarthrosis [None]
  - Wound haemorrhage [None]
  - Lung disorder [None]
  - Hypoxia [None]
  - Infectious pleural effusion [None]
  - Pulmonary oedema [None]
  - Poisoning [None]
